FAERS Safety Report 8642876 (Version 6)
Quarter: 2013Q3

REPORT INFORMATION
  Report Type: Report from Study
  Country: CA (occurrence: CA)
  Receive Date: 20120629
  Receipt Date: 20130821
  Transmission Date: 20140515
  Serious: Yes (Other)
  Sender: FDA-Public Use
  Company Number: PHHY2011CA78020

PATIENT
  Sex: Male

DRUGS (4)
  1. ZOMETA [Suspect]
     Indication: RENAL CELL CARCINOMA
     Dosage: 3.5 MG, EVERY 8 WEEKS
     Route: 042
     Dates: start: 20101115
  2. ZOMETA [Suspect]
     Dosage: 4 MG, EVERY 8 WEEKS
     Route: 042
  3. ZOMETA [Suspect]
     Dosage: 4 MG, Q 2 MONTHS
     Route: 042
     Dates: end: 20130702
  4. CHEMOTHERAPEUTICS [Concomitant]
     Dosage: UNK UKN, UNK

REACTIONS (11)
  - Movement disorder [Unknown]
  - Hypoaesthesia [Unknown]
  - Poor venous access [Unknown]
  - Vascular rupture [Unknown]
  - Contusion [Unknown]
  - Scab [Unknown]
  - White blood cell count decreased [Unknown]
  - Fatigue [Unknown]
  - Local swelling [Unknown]
  - Joint swelling [Unknown]
  - Decreased appetite [Unknown]
